FAERS Safety Report 9167486 (Version 1)
Quarter: 2013Q1

REPORT INFORMATION
  Report Type: Spontaneous
  Country: TW (occurrence: None)
  Receive Date: 20130305
  Receipt Date: 20130305
  Transmission Date: 20140127
  Serious: Yes (Hospitalization)
  Sender: FDA-Public Use
  Company Number: FD201300689

PATIENT
  Age: 64 Year
  Sex: Male

DRUGS (3)
  1. OXALIPLATIN [Suspect]
     Indication: COLON CANCER METASTATIC
     Dosage: 85 MG/M2
  2. FLUOROURACIL (FLUOROURACIL) [Concomitant]
  3. LEUCOVORIN (CALCIUM FOLINATE) [Concomitant]

REACTIONS (5)
  - Hyperammonaemic encephalopathy [None]
  - Aspartate aminotransferase increased [None]
  - Alanine aminotransferase increased [None]
  - Coma [None]
  - Cyanosis [None]
